FAERS Safety Report 22896591 (Version 3)
Quarter: 2023Q4

REPORT INFORMATION
  Report Type: Report from Study
  Country: US (occurrence: US)
  Receive Date: 20230901
  Receipt Date: 20231020
  Transmission Date: 20240110
  Serious: No
  Sender: FDA-Public Use
  Company Number: US-002147023-NVSC2023US190177

PATIENT
  Sex: Female

DRUGS (1)
  1. PIQRAY [Suspect]
     Active Substance: ALPELISIB
     Indication: Breast cancer metastatic
     Dosage: UNK
     Route: 065

REACTIONS (8)
  - Pruritus [Unknown]
  - Decreased appetite [Unknown]
  - Dry mouth [Unknown]
  - Pollakiuria [Not Recovered/Not Resolved]
  - Anal incontinence [Not Recovered/Not Resolved]
  - Lip dry [Unknown]
  - Dizziness [Unknown]
  - Swelling face [Unknown]
